FAERS Safety Report 12517033 (Version 1)
Quarter: 2016Q2

REPORT INFORMATION
  Report Type: Spontaneous
  Country: US (occurrence: US)
  Receive Date: 20160630
  Receipt Date: 20160630
  Transmission Date: 20160815
  Serious: No
  Sender: FDA-Public Use
  Company Number: US-PFIZER INC-2016297927

PATIENT
  Age: 66 Year
  Sex: Female
  Weight: 59.8 kg

DRUGS (1)
  1. GABAPENTIN. [Suspect]
     Active Substance: GABAPENTIN
     Indication: NEURALGIA
     Dosage: 300 MG BY MOUTH AT NIGHT
     Route: 048
     Dates: start: 20160425, end: 20160523

REACTIONS (1)
  - Drug ineffective for unapproved indication [Unknown]
